FAERS Safety Report 13860677 (Version 1)
Quarter: 2017Q3

REPORT INFORMATION
  Report Type: Spontaneous
  Country: US (occurrence: US)
  Receive Date: 20170811
  Receipt Date: 20170811
  Transmission Date: 20171127
  Serious: Yes (Hospitalization)
  Sender: FDA-Public Use
  Company Number: None

PATIENT
  Age: 60 Year
  Sex: Female

DRUGS (1)
  1. PROLIA [Suspect]
     Active Substance: DENOSUMAB
     Indication: SENILE OSTEOPOROSIS
     Dosage: 60MG Q6M SC
     Route: 058
     Dates: start: 20170216

REACTIONS (2)
  - Transient ischaemic attack [None]
  - Skin exfoliation [None]

NARRATIVE: CASE EVENT DATE: 201707
